FAERS Safety Report 23281873 (Version 3)
Quarter: 2023Q4

REPORT INFORMATION
  Report Type: Report from Study
  Country: US (occurrence: US)
  Receive Date: 20231211
  Receipt Date: 20231228
  Transmission Date: 20240110
  Serious: No
  Sender: FDA-Public Use
  Company Number: US-ALXN-A202311243

PATIENT
  Sex: Male

DRUGS (2)
  1. ULTOMIRIS [Suspect]
     Active Substance: RAVULIZUMAB-CWVZ
     Indication: Myasthenia gravis
     Dosage: UNK
     Route: 065
  2. MESTINON [Concomitant]
     Active Substance: PYRIDOSTIGMINE BROMIDE
     Indication: Product used for unknown indication
     Dosage: UNK
     Route: 065

REACTIONS (11)
  - Dysphagia [Unknown]
  - Speech disorder [Unknown]
  - Nasal discomfort [Unknown]
  - Muscular weakness [Unknown]
  - Hypoacusis [Unknown]
  - Eyelid ptosis [Recovering/Resolving]
  - Cerebral congestion [Unknown]
  - Hypersensitivity [Unknown]
  - Dysphonia [Unknown]
  - Asthenia [Unknown]
  - Photophobia [Unknown]
